FAERS Safety Report 25651624 (Version 1)
Quarter: 2025Q3

REPORT INFORMATION
  Report Type: Spontaneous
  Country: NG (occurrence: NG)
  Receive Date: 20250806
  Receipt Date: 20250806
  Transmission Date: 20251020
  Serious: Yes (Hospitalization, Other)
  Sender: SLATE RUN
  Company Number: NG-SLATERUN-2025SRLIT00116

PATIENT
  Age: 21 Year
  Sex: Male

DRUGS (5)
  1. IBUPROFEN [Suspect]
     Active Substance: IBUPROFEN
     Indication: Pain
     Route: 065
  2. DICLOFENAC [Suspect]
     Active Substance: DICLOFENAC
     Indication: Pain
     Route: 065
  3. PENTAZOCINE [Concomitant]
     Active Substance: PENTAZOCINE
     Indication: Pain
     Route: 065
  4. FOLIC ACID [Concomitant]
     Active Substance: FOLIC ACID
     Indication: Product used for unknown indication
     Route: 065
  5. Astymin [Concomitant]
     Indication: Product used for unknown indication
     Route: 065

REACTIONS (2)
  - Ileal perforation [Recovered/Resolved]
  - Gastric perforation [Recovered/Resolved]
